FAERS Safety Report 18683822 (Version 1)
Quarter: 2020Q4

REPORT INFORMATION
  Report Type: Spontaneous
  Country: US (occurrence: US)
  Receive Date: 20201230
  Receipt Date: 20201230
  Transmission Date: 20210114
  Serious: Yes (Hospitalization, Other)
  Sender: FDA-Public Use
  Company Number: US-SA-2020SA369617

PATIENT

DRUGS (3)
  1. LEFLUNOMIDE. [Suspect]
     Active Substance: LEFLUNOMIDE
     Indication: RHEUMATOID ARTHRITIS
     Dosage: 20 MG, QD
  2. PREDNISONE. [Concomitant]
     Active Substance: PREDNISONE
     Indication: RHEUMATOID ARTHRITIS
     Dosage: 5 G, QD
     Route: 048
  3. METHADONE [Concomitant]
     Active Substance: METHADONE HYDROCHLORIDE
     Indication: DRUG ABUSE

REACTIONS (7)
  - Diarrhoea haemorrhagic [Recovered/Resolved]
  - Mucosal erosion [Recovered/Resolved]
  - Hypokalaemia [Recovered/Resolved]
  - Sinus tachycardia [Recovered/Resolved]
  - Colitis [Recovered/Resolved]
  - Gastrointestinal wall thickening [Recovered/Resolved]
  - Mucosal inflammation [Recovered/Resolved]
